FAERS Safety Report 6785168-4 (Version None)
Quarter: 2010Q2

REPORT INFORMATION
  Report Type: 
  Country: None (occurrence: None)
  Receive Date: 20100618
  Receipt Date: 20100603
  Transmission Date: 20101027
  Serious: Yes (Other)
  Sender: FDA-Public Use
  Company Number: 144-50794-10060620

PATIENT
  Sex: Male

DRUGS (1)
  1. VIDAZA [Suspect]
     Indication: MYELODYSPLASTIC SYNDROME
     Dosage: 100 MG/M2, X7 DAYS SCHEDULE, SUBCUTANEOUS
     Route: 058

REACTIONS (1)
  - ACUTE MYELOID LEUKAEMIA [None]
